FAERS Safety Report 5595539-X (Version None)
Quarter: 2008Q1

REPORT INFORMATION
  Report Type: 
  Country: None (occurrence: None)
  Receive Date: 20080116
  Receipt Date: 20080116
  Transmission Date: 20080703
  Serious: Yes (Hospitalization)
  Sender: FDA-Public Use
  Company Number: None

PATIENT
  Sex: Male
  Weight: 89 kg

DRUGS (2)
  1. FLUOROURACIL [Suspect]
     Dosage: 2050 MG
  2. MITOMYCIN [Suspect]
     Dosage: 20 MG

REACTIONS (10)
  - DIARRHOEA [None]
  - ERYTHEMA [None]
  - FEBRILE NEUTROPENIA [None]
  - HEADACHE [None]
  - MICTURITION URGENCY [None]
  - NAUSEA [None]
  - PHARYNGOLARYNGEAL PAIN [None]
  - POLLAKIURIA [None]
  - STAPHYLOCOCCAL INFECTION [None]
  - WHITE BLOOD CELL COUNT DECREASED [None]
